FAERS Safety Report 8943877 (Version 1)
Quarter: 2012Q4

REPORT INFORMATION
  Report Type: Report from Study
  Country: CA (occurrence: CA)
  Receive Date: 20121204
  Receipt Date: 20121204
  Transmission Date: 20130627
  Serious: Yes (Hospitalization)
  Sender: FDA-Public Use
  Company Number: CA-JNJFOC-20121112637

PATIENT
  Age: 22 Year
  Sex: Female
  Weight: 61.7 kg

DRUGS (5)
  1. REMICADE [Suspect]
     Indication: CROHN^S DISEASE
     Route: 042
     Dates: start: 201204
  2. IMURAN [Concomitant]
     Route: 065
  3. IRON INFUSIONS [Concomitant]
     Route: 065
  4. HYDROCHLOROTHIAZIDE [Concomitant]
     Route: 065
  5. CLOMIPRAMINE [Concomitant]
     Route: 065

REACTIONS (1)
  - Post procedural complication [Recovered/Resolved]
